FAERS Safety Report 12307405 (Version 1)
Quarter: 2016Q2

REPORT INFORMATION
  Report Type: Spontaneous
  Country: US (occurrence: US)
  Receive Date: 20160426
  Receipt Date: 20160426
  Transmission Date: 20160815
  Serious: Yes (Other)
  Sender: FDA-Public Use
  Company Number: US-ALKERMES INC.-ALK-2015-000116

PATIENT

DRUGS (5)
  1. THIAMIN [Concomitant]
     Active Substance: THIAMINE
     Indication: POLYNEUROPATHY ALCOHOLIC
     Dosage: 100 MG, QD
     Route: 048
     Dates: start: 20150505
  2. CLONIDINE. [Concomitant]
     Active Substance: CLONIDINE
     Indication: INSOMNIA
     Dosage: 0.2 MG, QHS
     Dates: start: 20150515
  3. CLONIDINE. [Concomitant]
     Active Substance: CLONIDINE
     Indication: ANXIETY
  4. VIVITROL [Suspect]
     Active Substance: NALTREXONE
     Indication: ALCOHOLISM
     Dosage: 380 MG, QMO
     Route: 030
     Dates: start: 20150519, end: 20150519
  5. FOLIC ACID. [Concomitant]
     Active Substance: FOLIC ACID
     Indication: POLYNEUROPATHY ALCOHOLIC
     Dosage: 1 MG, QD
     Route: 048
     Dates: start: 20150505

REACTIONS (1)
  - Seizure [Unknown]

NARRATIVE: CASE EVENT DATE: 20150519
